FAERS Safety Report 5510623-4 (Version None)
Quarter: 2007Q4

REPORT INFORMATION
  Report Type: 
  Country: None (occurrence: None)
  Receive Date: 20071108
  Receipt Date: 20071105
  Transmission Date: 20080405
  Serious: Yes (Other)
  Sender: FDA-Public Use
  Company Number: DE-BOEHRINGER INGELHEIM PHARMACEUTICALS, INC.-2007-DE-06459DE

PATIENT
  Sex: Male
  Weight: 90 kg

DRUGS (7)
  1. MICARDIS [Suspect]
     Route: 048
  2. AMITRIPTYLIN 10 [Suspect]
     Route: 048
  3. BACLOFEN [Suspect]
     Route: 048
  4. RAMIPRIL [Suspect]
     Route: 048
  5. FLUOXETIN 20 [Suspect]
     Route: 048
  6. LYRICA [Suspect]
     Route: 048
  7. TARGIN 10/5 [Suspect]
     Route: 048

REACTIONS (5)
  - CARDIOVASCULAR INSUFFICIENCY [None]
  - DRUG ABUSE [None]
  - OVERDOSE [None]
  - SOPOR [None]
  - SUICIDE ATTEMPT [None]
